FAERS Safety Report 8390189-4 (Version None)
Quarter: 2012Q2

REPORT INFORMATION
  Report Type: 
  Country: None (occurrence: None)
  Receive Date: 20120529
  Receipt Date: 20120521
  Transmission Date: 20120825
  Serious: Yes (Death)
  Sender: FDA-Public Use
  Company Number: US-PFIZER INC-2012073902

PATIENT
  Sex: Male
  Weight: 84.354 kg

DRUGS (2)
  1. LISINOPRIL [Concomitant]
     Indication: HYPERTENSION
     Dosage: 20 MG, 1X/DAY
  2. VFEND [Suspect]
     Indication: APLASTIC ANAEMIA
     Dosage: 400 MG, 2X/DAY
     Dates: start: 20120101

REACTIONS (3)
  - CARDIAC DISORDER [None]
  - PLATELET COUNT DECREASED [None]
  - BLOOD DISORDER [None]
